FAERS Safety Report 9734400 (Version 2)
Quarter: 2013Q4

REPORT INFORMATION
  Report Type: Not Available
  Country: FR (occurrence: FR)
  Receive Date: 20131206
  Receipt Date: 20131206
  Transmission Date: 20140711
  Serious: Yes (Hospitalization)
  Sender: FDA-Public Use
  Company Number: FR-BEH-2013038695

PATIENT
  Age: 77 Year
  Sex: Male

DRUGS (8)
  1. PRIVIGEN [Suspect]
     Indication: MUSCULAR WEAKNESS
     Dosage: 4 VIALS (100 MG/ML)
     Route: 042
     Dates: start: 20130803, end: 20130803
  2. PRIVIGEN [Suspect]
     Dosage: 2 VIALS (100 MG/ML)
     Route: 042
     Dates: start: 20130803, end: 20130803
  3. PRIVIGEN [Suspect]
     Dosage: 5 VIALS (100 MG/ML)
     Route: 042
     Dates: start: 20130804, end: 20130804
  4. PRIVIGEN [Suspect]
     Dosage: 1 VIAL (100 MG/ML)
     Route: 042
     Dates: start: 20130805, end: 20130805
  5. PRIVIGEN [Suspect]
     Dosage: 4 VIALS (100 MG/ML)
     Route: 042
     Dates: start: 20130805, end: 20130805
  6. NEXIUM [Suspect]
     Dosage: STOPPED IN AUG-2013 DUE TO THE HEPATIC CYTOLYSIS
     Route: 048
     Dates: start: 20130716
  7. CORTANCYL [Concomitant]
  8. PROSTIGMINE [Concomitant]

REACTIONS (1)
  - Hepatocellular injury [Recovered/Resolved]
